FAERS Safety Report 20067860 (Version 1)
Quarter: 2021Q4

REPORT INFORMATION
  Report Type: Spontaneous
  Country: US (occurrence: None)
  Receive Date: 20211109
  Receipt Date: 20211109
  Transmission Date: 20220304
  Serious: No
  Sender: FDA-Public Use
  Company Number: None

PATIENT
  Age: 32 Year
  Sex: Female
  Weight: 99.34 kg

DRUGS (1)
  1. REGEN-COV [Suspect]
     Active Substance: CASIRIVIMAB\IMDEVIMAB
     Indication: SARS-CoV-2 test positive
     Dosage: FREQUENCY : ONCE;?
     Route: 058
     Dates: start: 20211106, end: 20211106

REACTIONS (4)
  - Nausea [None]
  - Bradycardia [None]
  - Hypotension [None]
  - Pallor [None]
